FAERS Safety Report 17156468 (Version 1)
Quarter: 2019Q4

REPORT INFORMATION
  Report Type: Spontaneous
  Country: US (occurrence: US)
  Receive Date: 20191216
  Receipt Date: 20191216
  Transmission Date: 20200122
  Serious: No
  Sender: FDA-Public Use
  Company Number: US-DRREDDYS-USA/USA/19/0116987

PATIENT
  Sex: Female
  Weight: 46.8 kg

DRUGS (9)
  1. OMEPRAZOLE. [Suspect]
     Active Substance: OMEPRAZOLE
     Indication: HIATUS HERNIA
     Dosage: 5 YEARS
     Route: 065
  2. PROAIR HFA [Concomitant]
     Active Substance: ALBUTEROL SULFATE
     Indication: PRODUCT USED FOR UNKNOWN INDICATION
  3. MVI [Concomitant]
     Active Substance: VITAMINS
     Indication: PRODUCT USED FOR UNKNOWN INDICATION
  4. PROBIOTIC [Concomitant]
     Active Substance: PROBIOTICS NOS
     Indication: PRODUCT USED FOR UNKNOWN INDICATION
  5. MARIJUANA [Concomitant]
     Active Substance: CANNABIS SATIVA SUBSP. INDICA TOP
     Indication: PRODUCT USED FOR UNKNOWN INDICATION
  6. PERCOCET [Concomitant]
     Active Substance: ACETAMINOPHEN\OXYCODONE HYDROCHLORIDE
     Indication: PRODUCT USED FOR UNKNOWN INDICATION
  7. RANITIDINE CAPSULES 150 MG [Suspect]
     Active Substance: RANITIDINE
     Indication: HIATUS HERNIA
     Dosage: FOR 2.5 YEARS TO 3 YEARS AGO
     Route: 048
  8. RANITIDINE CAPSULES 150 MG [Suspect]
     Active Substance: RANITIDINE
     Dosage: AFTER FEW DOSES OF TWICE DAILY DOSING
     Route: 048
  9. OXYCODONE [Concomitant]
     Active Substance: OXYCODONE
     Indication: PRODUCT USED FOR UNKNOWN INDICATION

REACTIONS (11)
  - Fatigue [Unknown]
  - Steatorrhoea [Unknown]
  - Sleep disorder [Recovering/Resolving]
  - Dizziness [Unknown]
  - Back pain [Unknown]
  - Headache [Unknown]
  - Feeling hot [Unknown]
  - Immunoglobulins decreased [Unknown]
  - Blood urine present [Unknown]
  - Nausea [Not Recovered/Not Resolved]
  - Gastrointestinal motility disorder [Unknown]
